APPROVED DRUG PRODUCT: INTAL
Active Ingredient: CROMOLYN SODIUM
Strength: 0.8MG/INH
Dosage Form/Route: AEROSOL, METERED;INHALATION
Application: N018887 | Product #001
Applicant: KING PHARMACEUTICALS LLC
Approved: Dec 5, 1985 | RLD: No | RS: No | Type: DISCN